FAERS Safety Report 8184434-8 (Version None)
Quarter: 2012Q1

REPORT INFORMATION
  Report Type: 
  Country: None (occurrence: None)
  Receive Date: 20120305
  Receipt Date: 20120224
  Transmission Date: 20120608
  Serious: Yes (Death, Hospitalization, Other)
  Sender: FDA-Public Use
  Company Number: US-BAYER-2011-118742

PATIENT
  Age: 63 Year
  Sex: Female
  Weight: 59.8 kg

DRUGS (50)
  1. SORAFENIB (RAF KINASE INHIBITOR) [Suspect]
     Indication: ACUTE MYELOID LEUKAEMIA
     Dosage: 400 MG, BID
     Route: 048
     Dates: start: 20110104, end: 20120203
  2. PROMETHAZINE [Concomitant]
     Dosage: 12.5 MG, Q4HPM
     Route: 042
  3. METFORMIN HCL [Concomitant]
     Dosage: 500 MG, BID
     Route: 048
  4. PREDNISONE TAB [Concomitant]
     Dosage: 40 MG, BID
     Route: 048
  5. PENTAMIDINE [Concomitant]
     Indication: INFECTION PROPHYLAXIS
     Dosage: 300 MG, UNK
     Route: 042
  6. AZACITIDINE [Suspect]
     Indication: ACUTE MYELOID LEUKAEMIA
     Dosage: 75 MG/M2, QD
     Route: 042
     Dates: start: 20110104, end: 20111110
  7. TEMAZEPAM [Concomitant]
     Dosage: 15 MG, QHSPMS
     Route: 048
  8. MAGNESIUM SULFATE [Concomitant]
     Dosage: 8 MEQ, Q10H
     Route: 042
  9. VANCOMYCIN [Concomitant]
     Dosage: 125 MG, QID
     Route: 048
  10. CALCIUM CARBONATE [Concomitant]
     Route: 048
  11. SENNA S [DOCUSATE SODIUM,SENNOSIDE A+B] [Concomitant]
     Dosage: 2 TAB, BIDPM
     Route: 048
  12. GRANISETRON [Concomitant]
     Dosage: 1 MG, BID PRN
     Route: 042
  13. LOPERAMIDE HCL [Concomitant]
     Dosage: 2 MG, PRN
     Route: 048
  14. CLOBETASOL PROPIONATE [Concomitant]
     Dosage: UNK UNK, BID
  15. AZACITIDINE [Suspect]
     Dosage: 75 MG/M2, QD
     Route: 042
     Dates: start: 20120104, end: 20120110
  16. DEXTROMETHORPHAN W/GUAIFENESIN/PSEUDOEPHEDRIN [Concomitant]
     Dosage: 10 ML, Q4HPM
     Route: 048
  17. SENNA S [DOCUSATE SODIUM,SENNOSIDE A+B] [Concomitant]
     Dosage: 1 TAB, BIDPM
     Route: 048
  18. INSULIN LISPRO [Concomitant]
  19. NORTRIPTYLINE HCL [Concomitant]
     Dosage: 25 MG, QD
     Route: 048
  20. VANTIN [Concomitant]
     Indication: INFECTION PROPHYLAXIS
     Dosage: 200 MG, BID
  21. AZACITIDINE [Suspect]
     Dosage: 75 MG/M2, QD
     Route: 042
     Dates: start: 20111130, end: 20111206
  22. DEXTROSE 5% AND SODIUM CHLORIDE 0.45% IN PLASTIC CONTAINER [Concomitant]
     Dosage: 1000 ML, EVERY 8 HOURS
     Route: 042
  23. POTASSIUM CHLORIDE [Concomitant]
     Dosage: 30 MEQ, EVERY 8 HOURS
     Route: 042
  24. AMPHOTERICIN B [Concomitant]
     Route: 042
  25. VALCYTE [Concomitant]
     Dosage: 900 MG, QD
  26. LOMOTIL [DIPHENOXYLATE HYDROCHLORIDE] [Concomitant]
     Indication: DIARRHOEA
     Dosage: UNK UNK, PRN
     Route: 048
  27. CARVEDILOL [Concomitant]
     Dosage: 6.25 MG, EVERY 12 HOURS
     Route: 048
  28. DIPHENOXYLATE HCL AND ATROPINE SULFATE [Concomitant]
     Dosage: 1 TAB, PRN
     Route: 048
  29. HYDROCORTISON [HYDROCORTISONE SODIUM SUCCINATE] [Concomitant]
     Dosage: 25 MG, UD
     Route: 042
  30. SODIUM CHLORIDE [Concomitant]
     Dosage: 10 ML, UD
     Route: 042
  31. GANCICLOVIR [Concomitant]
     Dosage: 250 MG, BID
     Route: 042
  32. ACTIGALL [Concomitant]
     Indication: PROPHYLAXIS
     Dosage: 300 MG, TID
  33. ACETAMINOPHEN [Concomitant]
     Dosage: 650 MG, Q4HPM
     Route: 048
  34. ALUMINIUM HYDROXI W/MAGNESIUM HYDROX/SIMETHIC [Concomitant]
     Dosage: 15 ML, Q4HPM
     Route: 048
  35. PANTOPRAZOLE SODIUM [Concomitant]
     Dosage: 40 MG, QD
     Route: 048
  36. VORICONAZOLE [Concomitant]
     Dosage: 200 MG, BID
     Route: 048
  37. TRAMADOL HCL [Concomitant]
     Dosage: 50 MG, Q4HPMP
     Route: 048
  38. ARTIFICIAL TEARS [ARTIFICIAL TEARS] [Concomitant]
     Dosage: 1 GTT, QID
     Route: 047
  39. CLONAZEPAM [Concomitant]
     Dosage: 0.25 MG, TID PRN
     Route: 048
  40. MAGNESIUM OXIDE [Concomitant]
     Dosage: 500 MG, TID
     Route: 048
  41. PHENERGAN [Concomitant]
     Indication: NAUSEA
     Dosage: 12.5 MG, UNK
     Route: 048
  42. HEPARIN LOCK-FLUSH [Concomitant]
     Dosage: UNK UNK, QD
     Route: 042
  43. TACROLIMUS [Concomitant]
     Dosage: 0.5 MG, QD
     Route: 048
  44. VALACYCLOVIR HYDROCHLORIDE [Concomitant]
     Dosage: 500 MG, QD
     Route: 048
  45. BUDESONIDE [Concomitant]
     Dosage: 3 MG, TID
     Route: 048
  46. URSODIOL [Concomitant]
     Dosage: 300 MG, TID
     Route: 048
  47. ZYRTEC [Concomitant]
     Indication: HYPERSENSITIVITY
     Dosage: 10 MG, PRN
     Route: 048
  48. CANCIDAS [Concomitant]
     Dosage: 50 MG, QD
     Route: 042
  49. PHENERGAN [Concomitant]
     Indication: VOMITING
  50. OXYCODONE HCL [Concomitant]
     Indication: PAIN
     Dosage: UNK UNK, PRN
     Route: 048

REACTIONS (9)
  - MULTI-ORGAN FAILURE [None]
  - PNEUMONIA [None]
  - URINARY TRACT INFECTION [None]
  - ABDOMINAL PAIN [None]
  - HEPATIC INFECTION [None]
  - SEPSIS [None]
  - NEUTROPENIA [None]
  - CELLULITIS [None]
  - DIARRHOEA [None]
